FAERS Safety Report 7768467-9 (Version None)
Quarter: 2011Q3

REPORT INFORMATION
  Report Type: 
  Country: None (occurrence: None)
  Receive Date: 20110922
  Receipt Date: 20100827
  Transmission Date: 20111222
  Serious: No
  Sender: FDA-Public Use
  Company Number: US-ASTRAZENECA-2007UW27637

PATIENT
  Age: 55 Year
  Sex: Female
  Weight: 61.2 kg

DRUGS (4)
  1. SEROQUEL [Suspect]
     Route: 048
     Dates: start: 20051125, end: 20060403
  2. SEROQUEL [Suspect]
     Route: 048
     Dates: start: 20051125, end: 20060403
  3. SEROQUEL [Suspect]
     Indication: DEPRESSION
     Route: 048
     Dates: start: 20051114, end: 20060403
  4. SEROQUEL [Suspect]
     Indication: ANXIETY
     Route: 048
     Dates: start: 20051114, end: 20060403

REACTIONS (5)
  - OBESITY [None]
  - DIABETIC COMPLICATION [None]
  - TYPE 2 DIABETES MELLITUS [None]
  - ANKLE FRACTURE [None]
  - HYPERPROLACTINAEMIA [None]
